FAERS Safety Report 6767415-8 (Version None)
Quarter: 2010Q2

REPORT INFORMATION
  Report Type: 
  Country: None (occurrence: None)
  Receive Date: 20100611
  Receipt Date: 20100611
  Transmission Date: 20101027
  Serious: Yes (Hospitalization)
  Sender: FDA-Public Use
  Company Number: None

PATIENT
  Sex: Female
  Weight: 67 kg

DRUGS (2)
  1. OMNIPAQUE 350 [Suspect]
     Indication: COMPUTERISED TOMOGRAM
     Dosage: 125ML ONCE IV
     Route: 042
     Dates: start: 20100601, end: 20100601
  2. IODINE 350MG/ML [Suspect]

REACTIONS (3)
  - DYSPNOEA [None]
  - MYCOBACTERIUM TEST POSITIVE [None]
  - SNEEZING [None]
